FAERS Safety Report 7274849-4 (Version None)
Quarter: 2011Q1

REPORT INFORMATION
  Report Type: 
  Country: None (occurrence: None)
  Receive Date: 20110204
  Receipt Date: 20110201
  Transmission Date: 20110831
  Serious: Yes (Death)
  Sender: FDA-Public Use
  Company Number: DK-SANOFI-AVENTIS-2011SA006544

PATIENT
  Age: 67 Year
  Sex: Female

DRUGS (11)
  1. PRAVASTATIN [Concomitant]
  2. DOCETAXEL [Suspect]
     Indication: BREAST CANCER
     Route: 041
     Dates: start: 20101208, end: 20101208
  3. CYCLOPHOSPHAMIDE [Suspect]
     Indication: BREAST CANCER
     Route: 042
     Dates: start: 20101208, end: 20101208
  4. CYCLOPHOSPHAMIDE [Suspect]
     Route: 042
     Dates: start: 20110119, end: 20110119
  5. RAMIPRIL [Concomitant]
  6. LANSOPRAZOLE [Concomitant]
  7. ACETYLSALICYLIC ACID SRT [Concomitant]
  8. DOCETAXEL [Suspect]
     Route: 041
     Dates: start: 20101229, end: 20101229
  9. CYCLOPHOSPHAMIDE [Suspect]
     Route: 042
     Dates: start: 20101229, end: 20101229
  10. EZETROL [Concomitant]
  11. DOCETAXEL [Suspect]
     Route: 041
     Dates: start: 20110119, end: 20110119

REACTIONS (1)
  - CARDIAC ARREST [None]
